FAERS Safety Report 23538763 (Version 1)
Quarter: 2024Q1

REPORT INFORMATION
  Report Type: Spontaneous
  Country: US (occurrence: None)
  Receive Date: 20240219
  Receipt Date: 20240219
  Transmission Date: 20240410
  Serious: No
  Sender: FDA-Public Use
  Company Number: 2024A038529

PATIENT

DRUGS (2)
  1. BEVESPI AEROSPHERE [Suspect]
     Active Substance: FORMOTEROL FUMARATE\GLYCOPYRROLATE
     Indication: Chronic obstructive pulmonary disease
     Route: 055
  2. ALBUTEROL [Concomitant]
     Active Substance: ALBUTEROL
     Indication: Asthma

REACTIONS (9)
  - Blood pressure increased [Unknown]
  - Feeling hot [Unknown]
  - Malaise [Unknown]
  - Device malfunction [Unknown]
  - Device use issue [Unknown]
  - Device delivery system issue [Unknown]
  - Product prescribing issue [Unknown]
  - Incorrect dose administered by device [Unknown]
  - Impaired quality of life [Unknown]
